FAERS Safety Report 25892674 (Version 1)
Quarter: 2025Q4

REPORT INFORMATION
  Report Type: Spontaneous
  Country: EU (occurrence: EU)
  Receive Date: 20251007
  Receipt Date: 20251007
  Transmission Date: 20260118
  Serious: Yes (Other)
  Sender: PFIZER
  Company Number: EU-PFM-2021-12264

PATIENT
  Age: 65 Year
  Sex: Male

DRUGS (3)
  1. BRAFTOVI [Suspect]
     Active Substance: ENCORAFENIB
     Indication: Malignant melanoma
     Dosage: 6X75 MG/DAY
     Route: 048
     Dates: start: 20200710
  2. MEKTOVI [Suspect]
     Active Substance: BINIMETINIB
     Indication: Malignant melanoma
     Dosage: 3X15 MG/DAY
     Route: 048
     Dates: start: 20200710
  3. ZOLEDRONATE DISODIUM [Concomitant]
     Active Substance: ZOLEDRONATE DISODIUM
     Dosage: 2 TIMES

REACTIONS (7)
  - Calculus urinary [Recovered/Resolved]
  - Calculus bladder [Recovered/Resolved]
  - Cholelithiasis [Recovered/Resolved]
  - Obstructive nephropathy [Recovered/Resolved]
  - Blood creatine phosphokinase increased [Recovered/Resolved]
  - Patella fracture [Recovered/Resolved]
  - Rash [Recovered/Resolved]

NARRATIVE: CASE EVENT DATE: 20221101
